FAERS Safety Report 11009463 (Version 1)
Quarter: 2015Q2

REPORT INFORMATION
  Report Type: Spontaneous
  Country: FR (occurrence: FR)
  Receive Date: 20150410
  Receipt Date: 20150410
  Transmission Date: 20150821
  Serious: Yes (Hospitalization)
  Sender: FDA-Public Use
  Company Number: FR-SA-2015SA042798

PATIENT
  Age: 89 Year
  Sex: Female

DRUGS (12)
  1. ATORVASTATIN [Concomitant]
     Active Substance: ATORVASTATIN
  2. PREVISCAN [Concomitant]
     Active Substance: FLUINDIONE
     Dosage: STRENGTH: 20MG
  3. BISOCE [Suspect]
     Active Substance: BISOPROLOL
     Indication: HYPERTENSION
     Route: 065
  4. DIGOXINE NATIVELLE [Concomitant]
     Active Substance: DIGOXIN
     Dosage: STRENGTH: 0.25 MG
  5. SEROPLEX [Suspect]
     Active Substance: ESCITALOPRAM OXALATE
     Route: 065
     Dates: end: 201411
  6. LEVOTHYROX [Concomitant]
     Active Substance: LEVOTHYROXINE
     Dosage: STRENGTH: 100MCG
  7. INEXIUM [Concomitant]
     Active Substance: ESOMEPRAZOLE
  8. TEMESTA [Concomitant]
     Active Substance: LORAZEPAM
  9. VALSARTAN. [Concomitant]
     Active Substance: VALSARTAN
  10. EPINITRIL [Suspect]
     Active Substance: NITROGLYCERIN
     Route: 062
     Dates: end: 201411
  11. LASILIX [Suspect]
     Active Substance: FUROSEMIDE
     Route: 048
     Dates: start: 2014, end: 201411
  12. HEMIGOXINE NATIVELLE [Concomitant]
     Active Substance: DIGOXIN
     Dosage: STRENGTH: 0.125MG

REACTIONS (2)
  - Orthostatic hypotension [Recovered/Resolved]
  - Fall [Recovered/Resolved]

NARRATIVE: CASE EVENT DATE: 20141125
